FAERS Safety Report 15538020 (Version 1)
Quarter: 2018Q4

REPORT INFORMATION
  Report Type: Spontaneous
  Country: US (occurrence: US)
  Receive Date: 20181022
  Receipt Date: 20181022
  Transmission Date: 20190205
  Serious: Yes (Other)
  Sender: FDA-Public Use
  Company Number: US-PFIZER INC-2018421507

PATIENT
  Sex: Female

DRUGS (2)
  1. ADVIL [Suspect]
     Active Substance: IBUPROFEN
     Dosage: UNK
  2. CREON [Interacting]
     Active Substance: PANCRELIPASE AMYLASE\PANCRELIPASE LIPASE\PANCRELIPASE PROTEASE
     Indication: CYSTIC FIBROSIS
     Dosage: UNK

REACTIONS (9)
  - Somnolence [Unknown]
  - Drug interaction [Unknown]
  - Diabetes mellitus [Unknown]
  - Lung infection [Unknown]
  - Lethargy [Unknown]
  - Feeling abnormal [Unknown]
  - Mental disorder [Unknown]
  - Increased bronchial secretion [Unknown]
  - Productive cough [Unknown]
